FAERS Safety Report 8777188 (Version 2)
Quarter: 2012Q4

REPORT INFORMATION
  Report Type: Report from Study
  Country: BE (occurrence: BE)
  Receive Date: 20120911
  Receipt Date: 20120925
  Transmission Date: 20130627
  Serious: Yes (Life-Threatening, Other)
  Sender: FDA-Public Use
  Company Number: BE-AMGEN-BELSP2011037071

PATIENT
  Age: 49 Year
  Sex: Female
  Weight: 58 kg

DRUGS (10)
  1. ETANERCEPT [Suspect]
     Indication: RHEUMATOID ARTHRITIS
     Dosage: 50 mg, weekly
     Route: 058
     Dates: start: 20080910, end: 20110620
  2. LEDERTREXATE                       /00113801/ [Concomitant]
     Indication: RHEUMATOID ARTHRITIS
     Dosage: 15 mg, weekly
     Route: 048
     Dates: start: 20011116
  3. FOLIC ACID [Concomitant]
     Dosage: UNK
  4. CALCIUM CARBONATE [Concomitant]
     Dosage: 1250 mg, 1x/day
  5. VITAMIN D3 [Concomitant]
     Dosage: 1 DF, monthly
  6. IBUPROFEN [Concomitant]
     Dosage: UNK
  7. PARACETAMOL [Concomitant]
     Dosage: UNK
  8. DULCOLAX                           /00064401/ [Concomitant]
     Dosage: UNK
  9. VALTRAN [Concomitant]
     Dosage: UNK
  10. MEDROL                             /00049601/ [Concomitant]
     Dosage: UNK

REACTIONS (4)
  - Pleural neoplasm [Not Recovered/Not Resolved]
  - Hydropneumothorax [Not Recovered/Not Resolved]
  - Breast cancer [Not Recovered/Not Resolved]
  - Malignant melanoma [Not Recovered/Not Resolved]
